FAERS Safety Report 7972183-8 (Version None)
Quarter: 2011Q4

REPORT INFORMATION
  Report Type: 
  Country: None (occurrence: None)
  Receive Date: 20111212
  Receipt Date: 20111130
  Transmission Date: 20120403
  Serious: Yes (Hospitalization)
  Sender: FDA-Public Use
  Company Number: ES-ELI_LILLY_AND_COMPANY-ES201112000028

PATIENT
  Sex: Female
  Weight: 68 kg

DRUGS (7)
  1. AIRTAL [Concomitant]
     Indication: PAIN
     Dosage: UNK, QD
     Route: 048
  2. TEVETENS [Concomitant]
     Indication: HYPERTENSION
     Dosage: UNK, QD
     Route: 048
  3. FORTEO [Suspect]
     Indication: OSTEOPOROSIS
     Dosage: 20 UG, QD
     Route: 058
     Dates: start: 20100521, end: 20110901
  4. CLOPIDOGREL [Concomitant]
     Indication: POOR PERIPHERAL CIRCULATION
     Dosage: 1 DF, QD
  5. RANITIDINA [Concomitant]
     Indication: GASTRIC DISORDER
     Dosage: 300 MG, QD
     Route: 048
  6. NOLOTIL [Concomitant]
     Indication: PAIN
     Dosage: 2 DF, QD
     Route: 048
  7. ATORVASTATINA [Concomitant]
     Indication: HYPERCHOLESTEROLAEMIA
     Dosage: 40 MG, QD
     Route: 048

REACTIONS (2)
  - CAROTID ARTERY OCCLUSION [None]
  - SYNCOPE [None]
